FAERS Safety Report 7016023-2 (Version None)
Quarter: 2010Q3

REPORT INFORMATION
  Report Type: 
  Country: None (occurrence: None)
  Receive Date: 20100927
  Receipt Date: 20100914
  Transmission Date: 20110219
  Serious: Yes (Other)
  Sender: FDA-Public Use
  Company Number: TN-WATSON-2010-12418

PATIENT
  Age: 81 Year
  Sex: Female

DRUGS (1)
  1. LIDOCAINE HCL W/ EPINEPHRINE [Suspect]
     Indication: LOCAL ANAESTHESIA
     Dosage: 3 ML 2% LIDOCAINE AND 1/100 000 EPINEPHRINE

REACTIONS (4)
  - ECTROPION [None]
  - SCAR [None]
  - SKIN NECROSIS [None]
  - TYPE IV HYPERSENSITIVITY REACTION [None]
